FAERS Safety Report 22722871 (Version 5)
Quarter: 2023Q4

REPORT INFORMATION
  Report Type: Report from Study
  Country: IE (occurrence: IE)
  Receive Date: 20230719
  Receipt Date: 20231011
  Transmission Date: 20240110
  Serious: Yes (Other)
  Sender: FDA-Public Use
  Company Number: IE-002147023-NVSC2023IE157301

PATIENT
  Sex: Male

DRUGS (5)
  1. MEKINIST [Suspect]
     Active Substance: TRAMETINIB DIMETHYL SULFOXIDE
     Indication: Product used for unknown indication
     Dosage: 2 MG
     Route: 048
     Dates: start: 20230701
  2. HYDROXYCHLOROQUINE [Concomitant]
     Active Substance: HYDROXYCHLOROQUINE
     Indication: Product used for unknown indication
     Dosage: 600 MG (LAST DOSE ADMINISTEREDON 01 JUL 2023)
     Route: 048
     Dates: start: 20230701
  3. MST [Concomitant]
     Indication: Pain
     Dosage: 10 MG, Q24H
     Route: 058
     Dates: start: 20230713, end: 20230713
  4. THIAMINE [Concomitant]
     Active Substance: THIAMINE
     Indication: Multi-vitamin deficiency
     Dosage: UNK
     Route: 048
     Dates: start: 20230712
  5. VITAMINS [Concomitant]
     Active Substance: VITAMINS
     Indication: Multi-vitamin deficiency
     Dosage: 1 DOSAGE FORM, QD
     Route: 065
     Dates: start: 20230712

REACTIONS (2)
  - Nausea [Not Recovered/Not Resolved]
  - Constipation [Not Recovered/Not Resolved]

NARRATIVE: CASE EVENT DATE: 20230703
